FAERS Safety Report 10685325 (Version 2)
Quarter: 2015Q1

REPORT INFORMATION
  Report Type: Spontaneous
  Country: US (occurrence: US)
  Receive Date: 20141231
  Receipt Date: 20150106
  Transmission Date: 20150720
  Serious: No
  Sender: FDA-Public Use
  Company Number: US-009507513-1412USA013883

PATIENT
  Sex: Female
  Weight: 111.1 kg

DRUGS (1)
  1. NEXPLANON [Suspect]
     Active Substance: ETONOGESTREL
     Dosage: 1 ROD/ 3 YEARS
     Route: 059
     Dates: start: 20130327

REACTIONS (3)
  - Device kink [Not Recovered/Not Resolved]
  - Amenorrhoea [Not Recovered/Not Resolved]
  - No adverse event [Unknown]
